FAERS Safety Report 7308366-X (Version None)
Quarter: 2011Q1

REPORT INFORMATION
  Report Type: 
  Country: None (occurrence: None)
  Receive Date: 20110223
  Receipt Date: 20110214
  Transmission Date: 20110831
  Serious: Yes (Other)
  Sender: FDA-Public Use
  Company Number: B0701438A

PATIENT
  Sex: Female

DRUGS (1)
  1. ARIXTRA [Suspect]
     Indication: THROMBOSIS PROPHYLAXIS
     Dosage: 2.5MG PER DAY
     Route: 058

REACTIONS (6)
  - ERYTHEMA [None]
  - DERMATITIS ALLERGIC [None]
  - PRURITUS [None]
  - DRUG INEFFECTIVE [None]
  - ECZEMA [None]
  - DEEP VEIN THROMBOSIS [None]
